FAERS Safety Report 4713661-4 (Version None)
Quarter: 2005Q3

REPORT INFORMATION
  Report Type: 
  Country: None (occurrence: None)
  Receive Date: 20050712
  Receipt Date: 20050628
  Transmission Date: 20060218
  Serious: No
  Sender: FDA-Public Use
  Company Number: 11732

PATIENT
  Age: 68 Year
  Sex: Male

DRUGS (1)
  1. PAMIDRONATE DISODIUM [Suspect]
     Indication: MULTIPLE MYELOMA
     Dosage: 90 MG IV
     Route: 042
     Dates: start: 20050620

REACTIONS (2)
  - EXTRAVASATION [None]
  - SOFT TISSUE INFLAMMATION [None]
